FAERS Safety Report 16729422 (Version 3)
Quarter: 2020Q1

REPORT INFORMATION
  Report Type: Spontaneous
  Country: US (occurrence: US)
  Receive Date: 20190822
  Receipt Date: 20200123
  Transmission Date: 20200409
  Serious: No
  Sender: FDA-Public Use
  Company Number: US-PFIZER INC-2019358139

PATIENT
  Age: 68 Year
  Sex: Female
  Weight: 75 kg

DRUGS (1)
  1. IBRANCE [Suspect]
     Active Substance: PALBOCICLIB
     Indication: BREAST CANCER METASTATIC
     Dosage: 125 MG, CYCLIC (DAILY, DAY 1-21, 7 DAYS OFF)(D1-21 Q 28 DAYS)
     Route: 048
     Dates: start: 20190812

REACTIONS (7)
  - Hyperhidrosis [Unknown]
  - Lacrimation increased [Unknown]
  - Rhinorrhoea [Unknown]
  - Sneezing [Unknown]
  - Feeling abnormal [Unknown]
  - Tremor [Unknown]
  - Stomatitis [Unknown]

NARRATIVE: CASE EVENT DATE: 20190816
